FAERS Safety Report 21531446 (Version 1)
Quarter: 2022Q4

REPORT INFORMATION
  Report Type: Spontaneous
  Country: US (occurrence: US)
  Receive Date: 20221031
  Receipt Date: 20221031
  Transmission Date: 20230113
  Serious: Yes (Other)
  Sender: FDA-Public Use
  Company Number: US-INCYTE CORPORATION-2022IN010423

PATIENT

DRUGS (1)
  1. JAKAFI [Suspect]
     Active Substance: RUXOLITINIB
     Indication: Polycythaemia vera
     Dosage: 10 MILLIGRAM, BID
     Route: 048
     Dates: start: 20220621

REACTIONS (7)
  - Renal impairment [Unknown]
  - Haematocrit increased [Unknown]
  - Platelet count increased [Unknown]
  - Sluggishness [Unknown]
  - Arthropathy [Unknown]
  - Migraine [Unknown]
  - Anaemia [Unknown]
